FAERS Safety Report 16268818 (Version 1)
Quarter: 2019Q2

REPORT INFORMATION
  Report Type: Spontaneous
  Country: US (occurrence: US)
  Receive Date: 20190503
  Receipt Date: 20190503
  Transmission Date: 20190711
  Serious: No
  Sender: FDA-Public Use
  Company Number: US-GLENMARK PHARMACEUTICALS-2019GMK040359

PATIENT

DRUGS (2)
  1. TACROLIMUS. [Suspect]
     Active Substance: TACROLIMUS
     Indication: DERMATOSIS
  2. TACROLIMUS. [Suspect]
     Active Substance: TACROLIMUS
     Indication: SKIN EROSION
     Dosage: UNK, BID
     Route: 061
     Dates: start: 20190318

REACTIONS (1)
  - Drug effective for unapproved indication [Unknown]
